FAERS Safety Report 16906025 (Version 2)
Quarter: 2020Q1

REPORT INFORMATION
  Report Type: Spontaneous
  Country: GB (occurrence: GB)
  Receive Date: 20191010
  Receipt Date: 20200219
  Transmission Date: 20200409
  Serious: Yes (Disabling, Other)
  Sender: FDA-Public Use
  Company Number: GB-AUROBINDO-AUR-APL-2019-065446

PATIENT

DRUGS (3)
  1. VENLAFAXINE [Suspect]
     Active Substance: VENLAFAXINE HYDROCHLORIDE
     Dosage: 225 MILLIGRAM, ONCE A DAY
     Route: 064
     Dates: start: 20180101
  2. VENLAFAXINE [Suspect]
     Active Substance: VENLAFAXINE HYDROCHLORIDE
     Indication: DEPRESSION
     Dosage: 150 MILLIGRAM, ONCE A DAY
     Route: 064
     Dates: start: 20180101
  3. SERTRALINE [Concomitant]
     Active Substance: SERTRALINE HYDROCHLORIDE
     Indication: DEPRESSION
     Dosage: 50 MILLIGRAM, ONCE A DAY ((BRIEFLY) DURING FIRST TRIMESTER)
     Route: 064

REACTIONS (12)
  - Newborn persistent pulmonary hypertension [Unknown]
  - Dyspnoea [Unknown]
  - Premature baby [Unknown]
  - Jaundice [Recovering/Resolving]
  - Hepatic function abnormal [Recovering/Resolving]
  - Agitation neonatal [Not Recovered/Not Resolved]
  - Foetal exposure during pregnancy [Unknown]
  - Neurological examination abnormal [Not Recovered/Not Resolved]
  - Preterm premature rupture of membranes [Unknown]
  - Periventricular leukomalacia [Unknown]
  - Acute kidney injury [Recovering/Resolving]
  - Sepsis [Unknown]
